FAERS Safety Report 23037513 (Version 2)
Quarter: 2023Q4

REPORT INFORMATION
  Report Type: Spontaneous
  Country: HR (occurrence: HR)
  Receive Date: 20231006
  Receipt Date: 20231031
  Transmission Date: 20240110
  Serious: Yes (Hospitalization)
  Sender: FDA-Public Use
  Company Number: None

PATIENT
  Age: 40 Year
  Sex: Female

DRUGS (2)
  1. MAXALT [Suspect]
     Active Substance: RIZATRIPTAN BENZOATE
     Indication: Migraine
     Dosage: DRUG STRENGTH: 10MG; DOSAGE: 1X1 (ONE TABLET ONCE PER DAY) (DOSAGE FORM: (ORAL LYOPHILISATE)
     Route: 048
     Dates: start: 20220105, end: 20220404
  2. ETHINYL ESTRADIOL\GESTODENE [Concomitant]
     Active Substance: ETHINYL ESTRADIOL\GESTODENE
     Indication: Hormonal contraception
     Dosage: 1 DF (DOSAGE FORM) = 1 TABLET (75 MICROGRAM GESTODENE / 20 MICROGRAM ETHINYLESTRADIOL; DRUG STRENGTH
     Route: 048
     Dates: start: 20220105

REACTIONS (3)
  - Immobile [Recovered/Resolved]
  - Polyuria [Unknown]
  - Hypokalaemia [Unknown]

NARRATIVE: CASE EVENT DATE: 20220101
